FAERS Safety Report 13131834 (Version 2)
Quarter: 2017Q2

REPORT INFORMATION
  Report Type: Report from Study
  Country: US (occurrence: US)
  Receive Date: 20170119
  Receipt Date: 20170623
  Transmission Date: 20170830
  Serious: Yes (Death, Hospitalization)
  Sender: FDA-Public Use
  Company Number: US-ACTELION-A-NJ2017-148433

PATIENT
  Age: 76 Year
  Sex: Female
  Weight: 46.26 kg

DRUGS (1)
  1. OPSUMIT [Suspect]
     Active Substance: MACITENTAN
     Indication: PULMONARY ARTERIAL HYPERTENSION
     Dosage: 10 MG, QD
     Route: 048

REACTIONS (7)
  - Blood glucose decreased [Unknown]
  - Headache [Unknown]
  - Syncope [Unknown]
  - Colitis [Unknown]
  - Death [Fatal]
  - Fluid retention [Unknown]
  - Fatigue [Unknown]

NARRATIVE: CASE EVENT DATE: 20170610
